FAERS Safety Report 18268892 (Version 2)
Quarter: 2020Q4

REPORT INFORMATION
  Report Type: Spontaneous
  Country: US (occurrence: US)
  Receive Date: 20200915
  Receipt Date: 20201105
  Transmission Date: 20210113
  Serious: No
  Sender: FDA-Public Use
  Company Number: US-PFIZER INC-2020352992

PATIENT
  Age: 50 Year
  Sex: Female
  Weight: 77.11 kg

DRUGS (1)
  1. GENOTROPIN [Suspect]
     Active Substance: SOMATROPIN
     Indication: HYPOPITUITARISM
     Dosage: 0.4 MG, DAILY (0.4MG INJECTION EVERY DAY IN RIGHT OR LEFT HIP WHERE ALL MUSCLE FATTING IS)
     Dates: start: 202001

REACTIONS (3)
  - Device issue [Unknown]
  - Underdose [Unknown]
  - Poor quality device used [Unknown]

NARRATIVE: CASE EVENT DATE: 202008
